FAERS Safety Report 6046563-4 (Version None)
Quarter: 2009Q1

REPORT INFORMATION
  Report Type: 
  Country: None (occurrence: None)
  Receive Date: 20090122
  Receipt Date: 20090112
  Transmission Date: 20090719
  Serious: Yes (Other)
  Sender: FDA-Public Use
  Company Number: PHEH2008US09794

PATIENT
  Sex: Female

DRUGS (10)
  1. RECLAST [Suspect]
     Indication: OSTEOPOROSIS
     Dosage: 5 MG, UNK
     Route: 042
     Dates: start: 20080918, end: 20080919
  2. METOPROLOL TARTRATE [Suspect]
     Indication: HYPERTENSION
     Dosage: 50 MG, BID
     Dates: end: 20080919
  3. COREG [Concomitant]
  4. IMDUR [Concomitant]
     Indication: CARDIAC DISORDER
  5. ASPIRIN [Concomitant]
     Dosage: 81 MG, UNK
  6. COLCHICINE [Concomitant]
     Dosage: 0.6 MG, UNK
  7. LASIX [Concomitant]
     Dosage: 40 MG, UNK
  8. NEXIUM [Concomitant]
     Dosage: 20 MG, UNK
  9. SYNTHROID [Concomitant]
     Indication: HYPOTHYROIDISM
     Dosage: 88 MCG (SCHEDULE UNSPECIFIED)
  10. OCUVITE                            /01053801/ [Concomitant]

REACTIONS (7)
  - DRUG ERUPTION [None]
  - FOOD INTOLERANCE [None]
  - INFECTION [None]
  - MALAISE [None]
  - RASH [None]
  - RASH ERYTHEMATOUS [None]
  - URTICARIA [None]
